FAERS Safety Report 10537237 (Version 1)
Quarter: 2014Q4

REPORT INFORMATION
  Report Type: Spontaneous
  Country: US (occurrence: US)
  Receive Date: 20141023
  Receipt Date: 20141023
  Transmission Date: 20150529
  Serious: Yes (Other)
  Sender: FDA-Public Use
  Company Number: US-AMGEN-USASP2014080403

PATIENT
  Sex: Female

DRUGS (1)
  1. NEULASTA [Suspect]
     Active Substance: PEGFILGRASTIM
     Indication: WHITE BLOOD CELL COUNT DECREASED
     Dosage: UNK, 24 HOURS AFTER CHEMO
     Route: 065

REACTIONS (8)
  - Immobile [Unknown]
  - Tearfulness [Unknown]
  - Drug effect incomplete [Unknown]
  - Pain [Unknown]
  - Fatigue [Unknown]
  - Rhinalgia [Unknown]
  - Bone pain [Unknown]
  - Pain in extremity [Unknown]
